FAERS Safety Report 14117860 (Version 1)
Quarter: 2017Q4

REPORT INFORMATION
  Report Type: Report from Study
  Country: None (occurrence: BR)
  Receive Date: 20171024
  Receipt Date: 20171024
  Transmission Date: 20180321
  Serious: Yes (Other)
  Sender: FDA-Public Use
  Company Number: BR-ABBVIE-17K-020-2135958-00

PATIENT
  Age: 41 Year
  Sex: Female
  Weight: 67 kg

DRUGS (6)
  1. LOSARTAN. [Concomitant]
     Active Substance: LOSARTAN
     Indication: HYPERTENSION
  2. HUMIRA [Suspect]
     Active Substance: ADALIMUMAB
     Indication: ANKYLOSING SPONDYLITIS
     Route: 058
     Dates: start: 20140101
  3. HUMIRA [Suspect]
     Active Substance: ADALIMUMAB
     Route: 058
  4. AAS [Suspect]
     Active Substance: ASPIRIN
     Indication: CEREBROVASCULAR ACCIDENT
     Route: 065
  5. ALENIA [Concomitant]
     Active Substance: BUDESONIDE\FORMOTEROL FUMARATE
     Indication: ASTHMA
  6. PRIMERA 20 [Concomitant]
     Indication: PRODUCT USED FOR UNKNOWN INDICATION

REACTIONS (12)
  - Gait disturbance [Recovered/Resolved]
  - Tumour haemorrhage [Recovered/Resolved]
  - Mobility decreased [Recovered/Resolved]
  - Menstrual disorder [Not Recovered/Not Resolved]
  - Oral discomfort [Recovered/Resolved]
  - Vision blurred [Recovering/Resolving]
  - Myopia [Recovering/Resolving]
  - Pain [Recovered/Resolved]
  - Cerebrovascular accident [Recovered/Resolved]
  - Hormone level abnormal [Recovered/Resolved]
  - Pituitary tumour [Recovering/Resolving]
  - Pituitary haemorrhage [Recovering/Resolving]

NARRATIVE: CASE EVENT DATE: 201612
